FAERS Safety Report 10817765 (Version 1)
Quarter: 2015Q1

REPORT INFORMATION
  Report Type: Report from Study
  Country: US (occurrence: US)
  Receive Date: 20150218
  Receipt Date: 20150218
  Transmission Date: 20150721
  Serious: No
  Sender: FDA-Public Use
  Company Number: US-ABBVIE-14K-163-1286830-00

PATIENT
  Age: 50 Year
  Sex: Female

DRUGS (3)
  1. HUMIRA [Suspect]
     Active Substance: ADALIMUMAB
     Indication: COLITIS ULCERATIVE
     Route: 065
     Dates: start: 20140717
  2. PREDNISONE. [Concomitant]
     Active Substance: PREDNISONE
     Dates: end: 20140912
  3. PREDNISONE. [Concomitant]
     Active Substance: PREDNISONE
     Indication: PRODUCT USED FOR UNKNOWN INDICATION
     Dosage: TAPERING 10 MG PER WEEK UNTIL DONE

REACTIONS (5)
  - Wrong technique in drug usage process [Unknown]
  - Injection site haemorrhage [Recovered/Resolved]
  - Injection site extravasation [Recovered/Resolved]
  - Injection site urticaria [Recovered/Resolved]
  - Injection site bruising [Recovered/Resolved]

NARRATIVE: CASE EVENT DATE: 20140717
